FAERS Safety Report 15348768 (Version 4)
Quarter: 2018Q3

REPORT INFORMATION
  Report Type: Report from Study
  Country: BR (occurrence: BR)
  Receive Date: 20180904
  Receipt Date: 20180914
  Transmission Date: 20181010
  Serious: No
  Sender: FDA-Public Use
  Company Number: PHHY2018BR085622

PATIENT
  Sex: Female
  Weight: 82 kg

DRUGS (7)
  1. ENTRESTO [Suspect]
     Active Substance: SACUBITRIL\VALSARTAN
     Dosage: 2 DF (200 MG), QD (STARTED 1 YEAR AGO) (49 MG SACUBITRIL, 51 MG VALSARTAN)
     Route: 048
  2. LOSARTAN. [Suspect]
     Active Substance: LOSARTAN
     Indication: PRODUCT USED FOR UNKNOWN INDICATION
     Route: 048
  3. CARVEDILOL. [Concomitant]
     Active Substance: CARVEDILOL
     Indication: CARDIAC DISORDER
     Dosage: 1 DF, QD (APPROXIAMATELY 2 YEARS AGO)
     Route: 065
  4. ALLOPURINOL. [Concomitant]
     Active Substance: ALLOPURINOL
     Indication: CARDIAC DISORDER
     Dosage: 1 DF, QD (APPROXIAMTELY 2 YEARS AGO)
     Route: 065
  5. ASA [Concomitant]
     Active Substance: ASPIRIN
     Indication: CARDIAC DISORDER
     Dosage: 1 DF, QD (APPROXIAMATELY 2 YEARS AGO)
     Route: 065
  6. ENTRESTO [Suspect]
     Active Substance: SACUBITRIL\VALSARTAN
     Indication: CARDIAC FAILURE
     Dosage: 51 MG, BID
     Route: 048
  7. SPIRONOLACTONE. [Concomitant]
     Active Substance: SPIRONOLACTONE
     Indication: CARDIAC DISORDER
     Dosage: 1 DF, QD (APPROXIAMATELY 2 YEARS AGO)
     Route: 065

REACTIONS (7)
  - Eating disorder [Unknown]
  - Hypotension [Unknown]
  - Urinary tract infection [Recovered/Resolved]
  - Asthenia [Unknown]
  - Influenza [Unknown]
  - Cough [Unknown]
  - Dizziness [Unknown]
